FAERS Safety Report 19304396 (Version 2)
Quarter: 2021Q2

REPORT INFORMATION
  Report Type: Report from Study
  Country: JP (occurrence: JP)
  Receive Date: 20210525
  Receipt Date: 20210622
  Transmission Date: 20210717
  Serious: Yes (Death, Other)
  Sender: FDA-Public Use
  Company Number: JP-SEATTLE GENETICS-2021SGN02886

PATIENT
  Age: 71 Year
  Sex: Female
  Weight: 43 kg

DRUGS (5)
  1. FUROSEMIDE. [Concomitant]
     Active Substance: FUROSEMIDE
     Indication: OEDEMA
     Dosage: 40 MILLIGRAM, QD
     Route: 048
     Dates: start: 20200424, end: 20200424
  2. BAKTAR [Concomitant]
     Active Substance: SULFAMETHOXAZOLE\TRIMETHOPRIM
     Indication: PROPHYLAXIS
     Dosage: 1 DOSAGE FORM, QD
     Route: 048
     Dates: start: 20200424, end: 20200424
  3. ADCETRIS [Suspect]
     Active Substance: BRENTUXIMAB VEDOTIN
     Indication: PERIPHERAL T-CELL LYMPHOMA UNSPECIFIED
     Dosage: 100 MILLIGRAM, QD
     Route: 041
     Dates: start: 20200310, end: 20200310
  4. TAKEPRON [Concomitant]
     Active Substance: LANSOPRAZOLE
     Indication: GASTRITIS
     Dosage: 15 MILLIGRAM, QD
     Route: 048
     Dates: start: 20200424, end: 20200424
  5. DEPAS [Concomitant]
     Indication: ANXIETY
     Dosage: 1 MILLIGRAM, QD
     Route: 048
     Dates: start: 20200424, end: 20200424

REACTIONS (1)
  - COVID-19 pneumonia [Fatal]

NARRATIVE: CASE EVENT DATE: 20200406
